FAERS Safety Report 7152559-1 (Version None)
Quarter: 2010Q4

REPORT INFORMATION
  Report Type: 
  Country: None (occurrence: None)
  Receive Date: 20101209
  Receipt Date: 20101209
  Transmission Date: 20110411
  Serious: Yes (Other)
  Sender: FDA-Public Use
  Company Number: None

PATIENT
  Age: 93 Year
  Sex: Female
  Weight: 50.8029 kg

DRUGS (1)
  1. FORTEO [Suspect]
     Indication: OSTEOPOROSIS
     Dosage: 20 MICROGRAMS DAILY
     Dates: start: 20090122, end: 20090620

REACTIONS (2)
  - POSTMENOPAUSAL HAEMORRHAGE [None]
  - UTERINE POLYP [None]
